FAERS Safety Report 7463471-2 (Version None)
Quarter: 2011Q2

REPORT INFORMATION
  Report Type: 
  Country: None (occurrence: None)
  Receive Date: 20110506
  Receipt Date: 20110429
  Transmission Date: 20111010
  Serious: Yes (Other)
  Sender: FDA-Public Use
  Company Number: US-GENENTECH-317917

PATIENT
  Sex: Female

DRUGS (5)
  1. SPIRIVA [Concomitant]
     Indication: PRODUCT USED FOR UNKNOWN INDICATION
  2. PROAIR HFA [Concomitant]
     Indication: PRODUCT USED FOR UNKNOWN INDICATION
  3. XOLAIR [Suspect]
     Indication: ASTHMA
     Dosage: 1 INJECTION, 1/MONTH
     Route: 058
     Dates: start: 20110404
  4. QVAR 40 [Concomitant]
     Indication: PRODUCT USED FOR UNKNOWN INDICATION
  5. IPRATROPIUM BROMIDE [Concomitant]
     Indication: PRODUCT USED FOR UNKNOWN INDICATION

REACTIONS (3)
  - DIZZINESS [None]
  - CHEST DISCOMFORT [None]
  - DYSPNOEA [None]
